FAERS Safety Report 21298419 (Version 1)
Quarter: 2022Q3

REPORT INFORMATION
  Report Type: Spontaneous
  Country: US (occurrence: US)
  Receive Date: 20220906
  Receipt Date: 20220906
  Transmission Date: 20221027
  Serious: Yes (Other)
  Sender: FDA-Public Use
  Company Number: US-PFIZER INC-PV202200055587

PATIENT
  Age: 64 Year
  Sex: Male

DRUGS (1)
  1. LIPITOR [Suspect]
     Active Substance: ATORVASTATIN CALCIUM
     Dosage: UNK

REACTIONS (5)
  - Type 1 diabetes mellitus [Unknown]
  - Atrial fibrillation [Unknown]
  - International normalised ratio fluctuation [Unknown]
  - Weight increased [Unknown]
  - Ejection fraction decreased [Unknown]
